FAERS Safety Report 14179787 (Version 4)
Quarter: 2020Q2

REPORT INFORMATION
  Report Type: Spontaneous
  Country: US (occurrence: US)
  Receive Date: 20171110
  Receipt Date: 20200428
  Transmission Date: 20200713
  Serious: Yes (Hospitalization, Other)
  Sender: FDA-Public Use
  Company Number: US-BIOMARINAP-US-2017-116019

PATIENT
  Age: 14 Year
  Sex: Male

DRUGS (3)
  1. ALDURAZYME [Suspect]
     Active Substance: LARONIDASE
     Dosage: 11.6 MILLIGRAM, QW
     Route: 041
     Dates: start: 20160211
  2. ALDURAZYME [Suspect]
     Active Substance: LARONIDASE
     Indication: MUCOPOLYSACCHARIDOSIS I
     Dosage: UNK
     Route: 041
     Dates: start: 20040309
  3. ALDURAZYME [Suspect]
     Active Substance: LARONIDASE
     Dosage: 12.6 MG, QW
     Route: 041
     Dates: start: 20151021

REACTIONS (6)
  - Mobility decreased [Not Recovered/Not Resolved]
  - Device related infection [Recovering/Resolving]
  - Pyrexia [Recovering/Resolving]
  - Gastric stenosis [Recovered/Resolved]
  - Corneal disorder [Recovered/Resolved]
  - Musculoskeletal disorder [Not Recovered/Not Resolved]
